FAERS Safety Report 8168303-5 (Version None)
Quarter: 2012Q1

REPORT INFORMATION
  Report Type: 
  Country: None (occurrence: None)
  Receive Date: 20120227
  Receipt Date: 20120222
  Transmission Date: 20120608
  Serious: Yes (Hospitalization)
  Sender: FDA-Public Use
  Company Number: JP-MERCK-1202USA03157

PATIENT
  Age: 40 Year
  Sex: Female

DRUGS (9)
  1. SEROTONE [Suspect]
     Indication: CHEMOTHERAPY
     Route: 041
     Dates: start: 20120115, end: 20120117
  2. ALOXI [Concomitant]
     Indication: CHEMOTHERAPY
     Route: 041
     Dates: start: 20120113, end: 20120117
  3. EMEND [Suspect]
     Indication: CHEMOTHERAPY
     Route: 048
     Dates: start: 20120113, end: 20120113
  4. CHLOR-TRIMETON [Suspect]
     Indication: CHEMOTHERAPY
     Route: 041
     Dates: start: 20120113, end: 20120117
  5. LEVOLEUCOVORIN CALCIUM [Suspect]
     Indication: CHEMOTHERAPY
     Route: 041
     Dates: start: 20120113, end: 20120114
  6. FLUOROURACIL [Suspect]
     Indication: CHEMOTHERAPY
     Dosage: MG 22H BOLUS 575 PERPETUATION 875MG
     Route: 041
     Dates: start: 20120113, end: 20120114
  7. EMEND [Suspect]
     Route: 048
     Dates: start: 20120114, end: 20120115
  8. DECADRON PHOSPHATE [Suspect]
     Indication: CHEMOTHERAPY
     Route: 041
     Dates: start: 20120113, end: 20120117
  9. OXALIPLATIN [Suspect]
     Indication: CHEMOTHERAPY
     Route: 041
     Dates: start: 20120113, end: 20120113

REACTIONS (2)
  - AGRANULOCYTOSIS [None]
  - BONE PAIN [None]
